FAERS Safety Report 9394452 (Version 1)
Quarter: 2013Q3

REPORT INFORMATION
  Report Type: Spontaneous
  Country: US (occurrence: None)
  Receive Date: 20130709
  Receipt Date: 20130709
  Transmission Date: 20140515
  Serious: Yes (Other)
  Sender: FDA-Public Use
  Company Number: None

PATIENT
  Age: 63 None
  Sex: Female
  Weight: 76.2 kg

DRUGS (11)
  1. LOSARTAN HCTZ [Suspect]
     Indication: HYPERTENSION
     Route: 048
     Dates: start: 20130515, end: 20130701
  2. LOSARTAN-HCTZ [Concomitant]
  3. AMLODIPINE [Concomitant]
  4. LEVOTHYROXINE [Concomitant]
  5. ALLEGRA [Concomitant]
  6. XOPENEX [Concomitant]
  7. NAXONEX [Concomitant]
  8. PULMICORT [Concomitant]
  9. FISH OIL [Concomitant]
  10. MULTI VITAMIN [Concomitant]
  11. VITAMIN D [Concomitant]

REACTIONS (2)
  - Drug ineffective [None]
  - Drug dispensing error [None]
